FAERS Safety Report 16718072 (Version 2)
Quarter: 2019Q4

REPORT INFORMATION
  Report Type: Report from Study
  Country: GB (occurrence: GB)
  Receive Date: 20190819
  Receipt Date: 20191004
  Transmission Date: 20200122
  Serious: Yes (Other)
  Sender: FDA-Public Use
  Company Number: GB-ELI_LILLY_AND_COMPANY-GB201908004177

PATIENT
  Sex: Female

DRUGS (2)
  1. PREGABALIN. [Concomitant]
     Active Substance: PREGABALIN
     Indication: PAIN
  2. TERIPARATIDE [Suspect]
     Active Substance: TERIPARATIDE
     Indication: OSTEOPOROSIS
     Dosage: 20 UG, DAILY
     Route: 058
     Dates: start: 20180920, end: 20190801

REACTIONS (8)
  - Syncope [Unknown]
  - Oropharyngeal pain [Unknown]
  - Kidney enlargement [Unknown]
  - Nephrolithiasis [Unknown]
  - Oral herpes [Unknown]
  - Dizziness [Unknown]
  - Constipation [Unknown]
  - Visual impairment [Unknown]
